FAERS Safety Report 15392618 (Version 3)
Quarter: 2018Q3

REPORT INFORMATION
  Report Type: Report from Study
  Country: None (occurrence: AU)
  Receive Date: 20180917
  Receipt Date: 20180926
  Transmission Date: 20181010
  Serious: Yes (Other)
  Sender: FDA-Public Use
  Company Number: AU-ABBVIE-18S-008-2485746-00

PATIENT
  Sex: Male

DRUGS (1)
  1. DUODOPA [Suspect]
     Active Substance: CARBIDOPA\LEVODOPA
     Indication: PARKINSON^S DISEASE
     Dosage: 100ML GEL CASSETTE, 16 HOUR INFUSION
     Route: 050
     Dates: start: 20180716

REACTIONS (3)
  - Leukaemia [Unknown]
  - Intestinal obstruction [Unknown]
  - Immunosuppression [Unknown]

NARRATIVE: CASE EVENT DATE: 2018
